FAERS Safety Report 7845688-8 (Version None)
Quarter: 2011Q4

REPORT INFORMATION
  Report Type: 
  Country: None (occurrence: None)
  Receive Date: 20111025
  Receipt Date: 20111020
  Transmission Date: 20120403
  Serious: Yes (Hospitalization, Disabling, Other)
  Sender: FDA-Public Use
  Company Number: US-TEVA-302446USA

PATIENT
  Sex: Female

DRUGS (2)
  1. ALENDRONIC ACID [Suspect]
  2. ALENDRONATE SODIUM [Suspect]

REACTIONS (3)
  - PULMONARY EMBOLISM [None]
  - FEMUR FRACTURE [None]
  - BONE DISORDER [None]
